FAERS Safety Report 12657818 (Version 2)
Quarter: 2016Q3

REPORT INFORMATION
  Report Type: Report from Study
  Country: DE (occurrence: FR)
  Receive Date: 20160816
  Receipt Date: 20160902
  Transmission Date: 20161109
  Serious: Yes (Death, Other)
  Sender: FDA-Public Use
  Company Number: DE-ACTELION-A-US2016-140872

PATIENT
  Age: 71 Year
  Sex: Male

DRUGS (1)
  1. VENTAVIS [Suspect]
     Active Substance: ILOPROST
     Indication: PULMONARY HYPERTENSION
     Dosage: 5 MCG, 6X DAY
     Route: 055

REACTIONS (2)
  - Respiratory disorder [Unknown]
  - Death [Fatal]

NARRATIVE: CASE EVENT DATE: 20160809
